FAERS Safety Report 12763676 (Version 1)
Quarter: 2016Q3

REPORT INFORMATION
  Report Type: Spontaneous
  Country: US (occurrence: US)
  Receive Date: 20160915
  Receipt Date: 20160915
  Transmission Date: 20161109
  Serious: No
  Sender: FDA-Public Use
  Company Number: None

PATIENT
  Age: 36 Year
  Sex: Male

DRUGS (1)
  1. IMATINIB 400MG RANBAXY [Suspect]
     Active Substance: IMATINIB
     Route: 048
     Dates: start: 20160505

REACTIONS (7)
  - Hypoaesthesia [None]
  - Headache [None]
  - Nausea [None]
  - Diarrhoea [None]
  - Fatigue [None]
  - Pain [None]
  - Impaired work ability [None]

NARRATIVE: CASE EVENT DATE: 20160506
